FAERS Safety Report 25941239 (Version 1)
Quarter: 2025Q4

REPORT INFORMATION
  Report Type: Spontaneous
  Country: US (occurrence: US)
  Receive Date: 20251020
  Receipt Date: 20251020
  Transmission Date: 20260118
  Serious: No
  Sender: ALNYLAM PHARMACEUTICALS
  Company Number: US-ALNYLAM PHARMACEUTICALS, INC.-ALN-2025-006401

PATIENT
  Age: 8 Year

DRUGS (1)
  1. GIVLAARI [Suspect]
     Active Substance: GIVOSIRAN SODIUM
     Indication: Porphyria acute
     Dosage: 2.5 MILLIGRAM/KILOGRAM, Q 28 DAYS

REACTIONS (4)
  - Blood creatinine increased [Unknown]
  - Laboratory test abnormal [Unknown]
  - Pre-existing condition improved [Unknown]
  - Off label use [Unknown]
